FAERS Safety Report 10205574 (Version 1)
Quarter: 2014Q2

REPORT INFORMATION
  Report Type: Spontaneous
  Country: US (occurrence: FR)
  Receive Date: 20140529
  Receipt Date: 20140529
  Transmission Date: 20141212
  Serious: Yes (Hospitalization)
  Sender: FDA-Public Use
  Company Number: FR-FRI-1000067681

PATIENT
  Age: 68 Year
  Sex: Male

DRUGS (9)
  1. CEFTAROLINE FOSAMIL [Suspect]
     Dosage: 1200 MG
     Route: 042
     Dates: start: 20140408
  2. RIFAMPICINE [Suspect]
     Dosage: 1200 MG
     Route: 042
     Dates: start: 20140408
  3. KARDEGIC [Concomitant]
  4. BISOPROLOL [Concomitant]
  5. LEVOTHYROX [Concomitant]
  6. AMLOR [Concomitant]
  7. GAVISCON [Concomitant]
  8. PRAVASTATINE [Concomitant]
  9. INSPRA [Concomitant]

REACTIONS (1)
  - Pancytopenia [Unknown]
